FAERS Safety Report 5357303-6 (Version None)
Quarter: 2007Q2

REPORT INFORMATION
  Report Type: 
  Country: None (occurrence: None)
  Receive Date: 20070614
  Receipt Date: 20070604
  Transmission Date: 20071010
  Serious: Yes (Other)
  Sender: FDA-Public Use
  Company Number: BE-JNJFOC-20070500075

PATIENT
  Sex: Male
  Weight: 60 kg

DRUGS (1)
  1. RISPERDAL [Suspect]
     Indication: HYPOMANIA
     Route: 048

REACTIONS (3)
  - APHASIA [None]
  - COGNITIVE DISORDER [None]
  - CONFUSIONAL STATE [None]
